FAERS Safety Report 22628454 (Version 1)
Quarter: 2023Q2

REPORT INFORMATION
  Report Type: Spontaneous
  Country: US (occurrence: None)
  Receive Date: 20230621
  Receipt Date: 20230621
  Transmission Date: 20230721
  Serious: Yes (Other)
  Sender: FDA-Public Use
  Company Number: None

PATIENT
  Age: 63 Year
  Sex: Female
  Weight: 48.6 kg

DRUGS (1)
  1. PROLIA [Suspect]
     Active Substance: DENOSUMAB
     Indication: Osteoporosis
     Dates: start: 20170501, end: 20220522

REACTIONS (6)
  - Therapy interrupted [None]
  - Back pain [None]
  - Chest pain [None]
  - Compression fracture [None]
  - Rebound effect [None]
  - Lumbar vertebral fracture [None]

NARRATIVE: CASE EVENT DATE: 20230401
